FAERS Safety Report 6719193-6 (Version None)
Quarter: 2010Q2

REPORT INFORMATION
  Report Type: 
  Country: None (occurrence: None)
  Receive Date: 20100511
  Receipt Date: 20100505
  Transmission Date: 20101027
  Serious: Yes (Hospitalization, Other)
  Sender: FDA-Public Use
  Company Number: US-ASTRAZENECA-2010SE14737

PATIENT
  Sex: Male
  Weight: 86.6 kg

DRUGS (6)
  1. SEROQUEL [Suspect]
     Indication: DEPRESSION
     Route: 048
     Dates: start: 20050101, end: 20100301
  2. SEROQUEL [Suspect]
     Indication: INSOMNIA
     Route: 048
     Dates: start: 20050101, end: 20100301
  3. SEROQUEL [Suspect]
     Indication: SLEEP DISORDER
     Route: 048
     Dates: start: 20050101, end: 20100301
  4. SEROQUEL [Suspect]
     Route: 048
     Dates: start: 20100301, end: 20100401
  5. SEROQUEL [Suspect]
     Route: 048
     Dates: start: 20100301, end: 20100401
  6. SEROQUEL [Suspect]
     Route: 048
     Dates: start: 20100301, end: 20100401

REACTIONS (7)
  - CHILLS [None]
  - DRUG DOSE OMISSION [None]
  - HEADACHE [None]
  - LOSS OF CONSCIOUSNESS [None]
  - NASOPHARYNGITIS [None]
  - SYNCOPE [None]
  - TREMOR [None]
